FAERS Safety Report 8011839-8 (Version None)
Quarter: 2011Q4

REPORT INFORMATION
  Report Type: 
  Country: None (occurrence: None)
  Receive Date: 20111228
  Receipt Date: 20111220
  Transmission Date: 20120403
  Serious: Yes (Hospitalization)
  Sender: FDA-Public Use
  Company Number: CN-JNJFOC-20111208851

PATIENT
  Sex: Male
  Weight: 55 kg

DRUGS (6)
  1. BENZHEXOL [Concomitant]
     Route: 048
  2. CLONAZEPAM [Concomitant]
     Indication: PRODUCT USED FOR UNKNOWN INDICATION
     Dosage: 4 MG TWICE IN THE EVENING
     Route: 030
  3. CLONAZEPAM [Concomitant]
     Dosage: 20 MG STAT (IMMEDIATELY)
     Route: 030
  4. CLONAZEPAM [Concomitant]
     Route: 048
  5. CLONAZEPAM [Concomitant]
     Dosage: 4 MG ORALLY TWICE IN THE EVENING
     Route: 048
  6. PALIPERIDONE [Suspect]
     Indication: SCHIZOPHRENIA
     Route: 048
     Dates: start: 20111209, end: 20111219

REACTIONS (1)
  - PSYCHOTIC DISORDER [None]
